FAERS Safety Report 26119476 (Version 1)
Quarter: 2025Q4

REPORT INFORMATION
  Report Type: Spontaneous
  Country: US (occurrence: US)
  Receive Date: 20251204
  Receipt Date: 20251204
  Transmission Date: 20260117
  Serious: No
  Sender: ROCHE
  Company Number: US-ROCHE-10000448201

PATIENT
  Sex: Male

DRUGS (2)
  1. XOLAIR [Suspect]
     Active Substance: OMALIZUMAB
     Indication: Chronic spontaneous urticaria
     Dosage: LAST DATE OMALIZUMAB WAS 10/JUL/2025
     Route: 065
  2. XOLAIR [Suspect]
     Active Substance: OMALIZUMAB
     Dosage: LAST DATE OMALIZUMAB WAS 10/JUL/2025
     Route: 065

REACTIONS (2)
  - No adverse event [Unknown]
  - Off label use [Unknown]
